FAERS Safety Report 5772259-X (Version None)
Quarter: 2008Q2

REPORT INFORMATION
  Report Type: 
  Country: None (occurrence: None)
  Receive Date: 20080613
  Receipt Date: 20080602
  Transmission Date: 20081010
  Serious: Yes (Other)
  Sender: FDA-Public Use
  Company Number: PHHY2008IT09139

PATIENT
  Sex: Female

DRUGS (3)
  1. ZOMETA [Suspect]
     Indication: BREAST CANCER METASTATIC
     Dosage: 4 MG/MONTHLY
     Route: 042
     Dates: start: 20061001, end: 20080304
  2. AROMASIN [Concomitant]
  3. SOLDESAM [Concomitant]

REACTIONS (5)
  - BONE DISORDER [None]
  - HYPERBARIC OXYGEN THERAPY [None]
  - MASTICATION DISORDER [None]
  - OSTEONECROSIS [None]
  - PROSTHESIS IMPLANTATION [None]
